FAERS Safety Report 7560792-X (Version None)
Quarter: 2011Q2

REPORT INFORMATION
  Report Type: 
  Country: None (occurrence: None)
  Receive Date: 20110620
  Receipt Date: 20110620
  Transmission Date: 20111010
  Serious: Yes (Other)
  Sender: FDA-Public Use
  Company Number: None

PATIENT
  Sex: Male
  Weight: 63.5036 kg

DRUGS (1)
  1. HYDROXYUREA [Suspect]
     Indication: POLYCYTHAEMIA
     Dosage: 500MG 1 A DAY PO 4/12 - 4/15
     Route: 048

REACTIONS (2)
  - HAEMOGLOBIN DECREASED [None]
  - PRODUCT SUBSTITUTION ISSUE [None]
